FAERS Safety Report 21403353 (Version 1)
Quarter: 2022Q4

REPORT INFORMATION
  Report Type: Spontaneous
  Country: US (occurrence: None)
  Receive Date: 20221001
  Receipt Date: 20221001
  Transmission Date: 20230113
  Serious: Yes (unspecified)
  Sender: FDA-Public Use
  Company Number: None

PATIENT
  Age: 5 Year
  Sex: Male
  Weight: 16.2 kg

DRUGS (1)
  1. LORTAB [Suspect]
     Active Substance: ACETAMINOPHEN\HYDROCODONE BITARTRATE
     Indication: Pain
     Dates: start: 20220919, end: 20220919

REACTIONS (10)
  - Product use issue [None]
  - Hypophagia [None]
  - Somnolence [None]
  - Depressed level of consciousness [None]
  - Dehydration [None]
  - Drug level increased [None]
  - Drug screen positive [None]
  - Eye swelling [None]
  - Peripheral swelling [None]
  - Product prescribing error [None]

NARRATIVE: CASE EVENT DATE: 20220901
